FAERS Safety Report 16937133 (Version 2)
Quarter: 2019Q4

REPORT INFORMATION
  Report Type: Report from Study
  Country: DE (occurrence: DE)
  Receive Date: 20191018
  Receipt Date: 20191025
  Transmission Date: 20200122
  Serious: Yes (Death, Hospitalization, Other)
  Sender: FDA-Public Use
  Company Number: DE-BAXTER-2019BAX020695

PATIENT
  Age: 0 Year
  Sex: Male
  Weight: 70 kg

DRUGS (9)
  1. MABTHERA [Suspect]
     Active Substance: RITUXIMAB
     Indication: DIFFUSE LARGE B-CELL LYMPHOMA
     Route: 058
     Dates: start: 20150408
  2. PREDNISOLONE. [Concomitant]
     Active Substance: PREDNISOLONE
     Indication: NAUSEA
     Dosage: DAY 1-5
     Route: 048
     Dates: start: 20150319, end: 20150611
  3. UROMITEXAN [Concomitant]
     Active Substance: MESNA
     Indication: PRODUCT USED FOR UNKNOWN INDICATION
     Dosage: DAILY DOSE: 1800 MG MILLGRAM(S) EVERY 2 WEEKS
     Route: 048
     Dates: start: 20150324, end: 20150611
  4. ENDOXAN 1G [Suspect]
     Active Substance: CYCLOPHOSPHAMIDE
     Indication: DIFFUSE LARGE B-CELL LYMPHOMA
     Dosage: DAILY DOSE: 1370 MG MILLGRAM(S) EVERY 2 WEEKS
     Route: 042
     Dates: start: 20150324, end: 20150611
  5. VINCRISTINE [Suspect]
     Active Substance: VINCRISTINE
     Indication: DIFFUSE LARGE B-CELL LYMPHOMA
     Route: 040
     Dates: start: 20150319, end: 20150611
  6. NEULASTA [Concomitant]
     Active Substance: PEGFILGRASTIM
     Indication: PROPHYLAXIS
     Dosage: DAILY DOSE: 6 MG MILLGRAM(S) EVERY 2 WEEKS
     Route: 058
     Dates: start: 20150324
  7. MABTHERA [Suspect]
     Active Substance: RITUXIMAB
     Route: 058
     Dates: start: 20150319, end: 20150611
  8. DOXIL [Suspect]
     Active Substance: DOXORUBICIN HYDROCHLORIDE
     Indication: DIFFUSE LARGE B-CELL LYMPHOMA
     Dosage: DAILY DOSE: 90 MG MILLGRAM(S) EVERY 2 WEEKS
     Route: 042
     Dates: start: 20150324, end: 20150611
  9. GRANISETRON [Concomitant]
     Active Substance: GRANISETRON
     Indication: NAUSEA
     Dosage: DAILY DOSE: 1 MG MILLGRAM(S) EVERY 2 WEEKS
     Route: 042
     Dates: start: 20150319, end: 20150611

REACTIONS (8)
  - Off label use [Unknown]
  - Anaemia [Fatal]
  - Pulmonary toxicity [Fatal]
  - Pneumonia [Fatal]
  - Product use in unapproved indication [Unknown]
  - Leukopenia [Fatal]
  - Sepsis [Fatal]
  - General physical health deterioration [Fatal]

NARRATIVE: CASE EVENT DATE: 20150324
